FAERS Safety Report 10187100 (Version 1)
Quarter: 2014Q2

REPORT INFORMATION
  Report Type: Spontaneous
  Country: US (occurrence: US)
  Receive Date: 20140522
  Receipt Date: 20140522
  Transmission Date: 20141212
  Serious: No
  Sender: FDA-Public Use
  Company Number: US-B.I. PHARMACEUTICALS,INC./RIDGEFIELD-2014-BI-21012BP

PATIENT
  Age: 54 Year
  Sex: Male
  Weight: 59 kg

DRUGS (5)
  1. SPIRIVA [Suspect]
     Indication: EMPHYSEMA
     Dosage: 18 MCG
     Route: 055
     Dates: start: 20140505
  2. ALBUTEROL [Concomitant]
     Indication: EMPHYSEMA
     Route: 055
  3. NORCO [Concomitant]
     Indication: MUSCULOSKELETAL PAIN
     Dosage: STRENGTH: 7.5 MG / 325 MG; DAILY DOSE: 30 MG / 1300 MG
     Route: 048
  4. NORCO [Concomitant]
     Indication: NECK PAIN
  5. NORCO [Concomitant]
     Indication: BACK PAIN

REACTIONS (1)
  - Dyspnoea [Not Recovered/Not Resolved]
